FAERS Safety Report 20411168 (Version 1)
Quarter: 2022Q1

REPORT INFORMATION
  Report Type: Spontaneous
  Country: SE (occurrence: SE)
  Receive Date: 20220201
  Receipt Date: 20220201
  Transmission Date: 20220423
  Serious: Yes (Hospitalization)
  Sender: FDA-Public Use
  Company Number: None

PATIENT
  Age: 75 Year
  Sex: Female

DRUGS (10)
  1. GABAPENTIN [Suspect]
     Active Substance: GABAPENTIN
     Indication: Neuralgia
     Dosage: 300 MILLIGRAM DAILY; 100 MG 1 TABLET 3 TIMES / DAY,GABAPENTIN ACTAVIS 100 MG CAPSULE, HARD
     Route: 048
     Dates: start: 20210303, end: 20210430
  2. ESTRIOL [Concomitant]
     Active Substance: ESTRIOL
  3. BETAMETHASONE [Concomitant]
     Active Substance: BETAMETHASONE
  4. MOVICOL [Concomitant]
     Active Substance: POLYETHYLENE GLYCOL 3350\POTASSIUM CHLORIDE\SODIUM BICARBONATE\SODIUM CHLORIDE
  5. HYDROCHLOROTHIAZIDE\LOSARTAN POTASSIUM [Concomitant]
     Active Substance: HYDROCHLOROTHIAZIDE\LOSARTAN POTASSIUM
     Dosage: 1 DOSAGE FORMS DAILY; 50 MG/12.5 MG 1 TAB/DAY,LOSARTAN / HYDROCHLOROTHIAZIDE KRKA
     Route: 048
     Dates: start: 20201009
  6. DESLORATADINE [Concomitant]
     Active Substance: DESLORATADINE
  7. ACETAMINOPHEN [Concomitant]
     Active Substance: ACETAMINOPHEN
  8. NITROLINGUAL [Concomitant]
     Active Substance: NITROGLYCERIN
  9. VAGIFEM [Concomitant]
     Active Substance: ESTRADIOL
     Dosage: 10 MICROGRAMS 1 VAGINAL TABLET 2 TIMES / WEEK
     Route: 067
     Dates: start: 20171112
  10. UREA [Concomitant]
     Active Substance: UREA

REACTIONS (1)
  - Fall [Recovering/Resolving]

NARRATIVE: CASE EVENT DATE: 20210426
